FAERS Safety Report 10745358 (Version 1)
Quarter: 2015Q1

REPORT INFORMATION
  Report Type: Spontaneous
  Country: US (occurrence: None)
  Receive Date: 20150127
  Receipt Date: 20150127
  Transmission Date: 20150721
  Serious: No
  Sender: FDA-Public Use
  Company Number: None

PATIENT
  Age: 79 Year
  Sex: Male
  Weight: 79.38 kg

DRUGS (5)
  1. FLOMAX [Suspect]
     Active Substance: TAMSULOSIN HYDROCHLORIDE
     Indication: BENIGN PROSTATIC HYPERPLASIA
     Dosage: 4 QD.?
     Dates: start: 20141201, end: 20150115
  2. LANTUS [Concomitant]
     Active Substance: INSULIN GLARGINE
  3. HUMALOG [Concomitant]
     Active Substance: INSULIN LISPRO
  4. THORATEC LVAD [Concomitant]
  5. ACTIVIS [Concomitant]

REACTIONS (4)
  - Fall [None]
  - Product substitution issue [None]
  - Syncope [None]
  - Drug ineffective [None]

NARRATIVE: CASE EVENT DATE: 20141201
